FAERS Safety Report 16673499 (Version 2)
Quarter: 2019Q3

REPORT INFORMATION
  Report Type: Spontaneous
  Country: JP (occurrence: JP)
  Receive Date: 20190806
  Receipt Date: 20190809
  Transmission Date: 20191004
  Serious: Yes (Other)
  Sender: FDA-Public Use
  Company Number: JP-SAKK-2019SA207738AA

PATIENT
  Age: 64 Year
  Sex: Female

DRUGS (1)
  1. DOCETAXEL. [Suspect]
     Active Substance: DOCETAXEL
     Indication: METASTASES TO LIVER
     Dosage: 16 COURSES WITHIN A YEAR
     Route: 041

REACTIONS (4)
  - Hepatic cirrhosis [Unknown]
  - Ascites [Unknown]
  - Pseudocirrhosis [Unknown]
  - Drug-induced liver injury [Unknown]
